FAERS Safety Report 10084512 (Version 9)
Quarter: 2015Q2

REPORT INFORMATION
  Report Type: Report from Study
  Country: US (occurrence: US)
  Receive Date: 20140417
  Receipt Date: 20150501
  Transmission Date: 20150821
  Serious: Yes (Hospitalization, Other)
  Sender: FDA-Public Use
  Company Number: US-SA-2014SA044336

PATIENT
  Age: 59 Year
  Sex: Male

DRUGS (2)
  1. AUBAGIO [Suspect]
     Active Substance: TERIFLUNOMIDE
     Indication: MULTIPLE SCLEROSIS
     Route: 048
     Dates: end: 20150401
  2. AUBAGIO [Suspect]
     Active Substance: TERIFLUNOMIDE
     Indication: MULTIPLE SCLEROSIS
     Route: 048
     Dates: start: 20131018

REACTIONS (6)
  - Unevaluable event [Unknown]
  - Drug dose omission [Unknown]
  - Limb injury [Not Recovered/Not Resolved]
  - Fall [Unknown]
  - Cardiac pacemaker insertion [Unknown]
  - Cardioversion [Unknown]

NARRATIVE: CASE EVENT DATE: 201310
